FAERS Safety Report 10008291 (Version 1)
Quarter: 2014Q1

REPORT INFORMATION
  Report Type: Spontaneous
  Country: US (occurrence: US)
  Receive Date: 20140313
  Receipt Date: 20140313
  Transmission Date: 20141002
  Serious: No
  Sender: FDA-Public Use
  Company Number: US-009507513-1403USA004576

PATIENT
  Sex: Male

DRUGS (2)
  1. CLARITIN LIQUIGELS [Suspect]
     Indication: HYPERSENSITIVITY
     Dosage: 10 MG, QD
     Route: 048
     Dates: start: 20140306, end: 20140307
  2. CLARITIN LIQUIGELS [Suspect]
     Dosage: UNK, UNKNOWN
     Route: 048
     Dates: start: 2013

REACTIONS (1)
  - Drug effect decreased [Unknown]
